FAERS Safety Report 7973179-2 (Version None)
Quarter: 2011Q4

REPORT INFORMATION
  Report Type: 
  Country: None (occurrence: None)
  Receive Date: 20111213
  Receipt Date: 20111130
  Transmission Date: 20120403
  Serious: Yes (Hospitalization)
  Sender: FDA-Public Use
  Company Number: TW-SANOFI-AVENTIS-2011SA078346

PATIENT
  Age: 51 Year
  Sex: Male

DRUGS (11)
  1. OXALIPLATIN [Suspect]
     Dosage: LAST DOSE BEFORE SAE: 4NOV2011LAST CYCLE BEFORE SAE: 12
     Route: 042
     Dates: start: 20110603, end: 20111021
  2. LORAZEPAM [Concomitant]
     Route: 048
     Dates: start: 20110603
  3. GEMCITABINE [Suspect]
     Dosage: LAST DOSE BEFORE SAE: 4NOV2011LAST CYCLE BEFORE SAE: 12
     Route: 042
     Dates: start: 20110603, end: 20111104
  4. MOSAPRIDE CITRATE [Concomitant]
     Route: 048
     Dates: start: 20110603
  5. MORPHINE HYDROCHLORIDE [Concomitant]
     Route: 048
     Dates: start: 20110603
  6. DEXAMETHASONE [Concomitant]
     Dosage: ORAL PASTE 1 PUFF STAT
     Route: 048
     Dates: start: 20110616
  7. TETRACYCLINE HYDROCHLORIDE [Concomitant]
     Dosage: OINTMENT FOR FACE
     Dates: start: 20110630
  8. CETUXIMAB [Suspect]
     Dosage: LAST DOSE BEFORE SAE: 4NOV2011LAST CYCLE BEFORE SAE: 12
     Route: 042
     Dates: start: 20110603, end: 20111104
  9. SENNOSIDE A [Concomitant]
     Route: 048
     Dates: start: 20110603
  10. PANTOPRAZOLE [Concomitant]
     Route: 048
     Dates: start: 20110603
  11. TRIAMCINOLONE [Concomitant]
     Dosage: IN ORABASE
     Route: 048
     Dates: start: 20110630

REACTIONS (1)
  - HEPATITIS ACUTE [None]
